FAERS Safety Report 21603938 (Version 2)
Quarter: 2022Q4

REPORT INFORMATION
  Report Type: Report from Study
  Country: US (occurrence: US)
  Receive Date: 20221116
  Receipt Date: 20221219
  Transmission Date: 20230112
  Serious: Yes (Hospitalization)
  Sender: FDA-Public Use
  Company Number: US-ABBVIE-4202619

PATIENT
  Age: 81 Year
  Sex: Male

DRUGS (2)
  1. IMBRUVICA [Suspect]
     Active Substance: IBRUTINIB
     Indication: Waldenstrom^s macroglobulinaemia
     Route: 048
  2. IMBRUVICA [Suspect]
     Active Substance: IBRUTINIB
     Indication: Waldenstrom^s macroglobulinaemia
     Route: 048
     Dates: start: 202206

REACTIONS (7)
  - Knee arthroplasty [Unknown]
  - Pain [Unknown]
  - Joint range of motion decreased [Unknown]
  - Cardiac pacemaker insertion [Unknown]
  - Osteoarthritis [Unknown]
  - Arthritis [Unknown]
  - Joint stiffness [Unknown]

NARRATIVE: CASE EVENT DATE: 20221031
